FAERS Safety Report 11404552 (Version 1)
Quarter: 2015Q3

REPORT INFORMATION
  Report Type: Spontaneous
  Country: SA (occurrence: SA)
  Receive Date: 20150821
  Receipt Date: 20150821
  Transmission Date: 20151125
  Serious: Yes (Death, Other)
  Sender: FDA-Public Use
  Company Number: SA-ROCHE-1624438

PATIENT
  Sex: Female
  Weight: .59 kg

DRUGS (1)
  1. ACTILYSE [Suspect]
     Active Substance: ALTEPLASE
     Indication: ATRIAL THROMBOSIS
     Dosage: OVER 6 HRS
     Route: 065

REACTIONS (5)
  - Death [Fatal]
  - Pulmonary hypertension [Unknown]
  - Bronchopulmonary dysplasia [Unknown]
  - Pneumonia [Unknown]
  - Intraventricular haemorrhage [Unknown]
